FAERS Safety Report 5761925-8 (Version None)
Quarter: 2008Q2

REPORT INFORMATION
  Report Type: 
  Country: None (occurrence: None)
  Receive Date: 20080603
  Receipt Date: 20080527
  Transmission Date: 20081010
  Serious: Yes (Hospitalization, Other)
  Sender: FDA-Public Use
  Company Number: 2008SP010185

PATIENT
  Age: 49 Year
  Sex: Male

DRUGS (4)
  1. PEG-INTRON [Suspect]
     Indication: HEPATITIS B
     Dosage: ; SC
     Route: 058
     Dates: start: 20080229
  2. PEG-INTRON [Suspect]
     Indication: HEPATITIS C
     Dosage: ; SC
     Route: 058
     Dates: start: 20080229
  3. RIBASPHERE [Suspect]
     Indication: HEPATITIS B
     Dosage: ; PO
     Route: 048
     Dates: start: 20080229
  4. RIBASPHERE [Suspect]
     Indication: HEPATITIS C
     Dosage: ; PO
     Route: 048
     Dates: start: 20080229

REACTIONS (4)
  - ANAEMIA [None]
  - GAIT DISTURBANCE [None]
  - INCOHERENT [None]
  - REFUSAL OF TREATMENT BY PATIENT [None]
